FAERS Safety Report 17709670 (Version 1)
Quarter: 2020Q2

REPORT INFORMATION
  Report Type: Spontaneous
  Country: JP (occurrence: JP)
  Receive Date: 20200427
  Receipt Date: 20200427
  Transmission Date: 20200714
  Serious: Yes (Hospitalization)
  Sender: FDA-Public Use
  Company Number: JP-LEADINGPHARMA-JP-2020LEALIT00059

PATIENT
  Age: 48 Year
  Sex: Male

DRUGS (3)
  1. FURSULTIAMINE [Interacting]
     Active Substance: FURSULTIAMINE
     Indication: OEDEMA
     Route: 042
  2. FUROSEMIDE TABLETS USP [Suspect]
     Active Substance: FUROSEMIDE
     Indication: PRODUCT USED FOR UNKNOWN INDICATION
     Route: 042
  3. FURSULTIAMINE [Interacting]
     Active Substance: FURSULTIAMINE
     Indication: CONFUSIONAL STATE

REACTIONS (2)
  - Confusional state [Recovering/Resolving]
  - Oedema [Recovering/Resolving]
